FAERS Safety Report 10649190 (Version 1)
Quarter: 2014Q4

REPORT INFORMATION
  Report Type: Report from Study
  Country: US (occurrence: US)
  Receive Date: 20141212
  Receipt Date: 20141212
  Transmission Date: 20150529
  Serious: Yes (Hospitalization, Other)
  Sender: FDA-Public Use
  Company Number: US-AMGEN-USASL2014095149

PATIENT
  Age: 71 Year
  Sex: Male

DRUGS (1)
  1. ENBREL [Suspect]
     Active Substance: ETANERCEPT
     Indication: RHEUMATOID ARTHRITIS
     Dosage: 50 MG, QWK
     Route: 065
     Dates: start: 20101209

REACTIONS (13)
  - Cardiac imaging procedure abnormal [Recovered/Resolved]
  - Asthenia [Not Recovered/Not Resolved]
  - Cardiac stress test abnormal [Recovered/Resolved]
  - Impaired healing [Recovered/Resolved]
  - Wound infection pseudomonas [Not Recovered/Not Resolved]
  - Fatigue [Recovered/Resolved]
  - Hypertension [Recovered/Resolved]
  - Balance disorder [Not Recovered/Not Resolved]
  - Cardiac disorder [Recovered/Resolved]
  - Back pain [Not Recovered/Not Resolved]
  - Arrhythmia [Recovered/Resolved]
  - Scab [Recovered/Resolved]
  - Mobility decreased [Not Recovered/Not Resolved]

NARRATIVE: CASE EVENT DATE: 201405
